FAERS Safety Report 26074291 (Version 1)
Quarter: 2025Q4

REPORT INFORMATION
  Report Type: Spontaneous
  Country: GB (occurrence: GB)
  Receive Date: 20251121
  Receipt Date: 20251121
  Transmission Date: 20260117
  Serious: Yes (Hospitalization, Other)
  Sender: RANBAXY
  Company Number: GB-MHRA-MED-202511071108456320-KTDJG

PATIENT
  Age: 12 Year
  Sex: Female
  Weight: 44 kg

DRUGS (1)
  1. SERTRALINE [Suspect]
     Active Substance: SERTRALINE HYDROCHLORIDE
     Indication: Adverse drug reaction
     Dosage: 25MG-100MG ONCE A DAY IN MORNING
     Route: 065
     Dates: start: 20250301, end: 20250701

REACTIONS (1)
  - Suicidal ideation [Recovered/Resolved]

NARRATIVE: CASE EVENT DATE: 20250401
